FAERS Safety Report 25191896 (Version 1)
Quarter: 2025Q2

REPORT INFORMATION
  Report Type: Spontaneous
  Country: US (occurrence: US)
  Receive Date: 20250414
  Receipt Date: 20250414
  Transmission Date: 20250717
  Serious: No
  Sender: AMGEN
  Company Number: US-AMGEN-USASP2025068865

PATIENT
  Age: 62 Year
  Sex: Female

DRUGS (3)
  1. PROLIA [Suspect]
     Active Substance: DENOSUMAB
     Indication: Osteopenia
     Route: 065
     Dates: start: 202409
  2. OMEPRAZOLE [Concomitant]
     Active Substance: OMEPRAZOLE
     Route: 065
  3. METHENAMINE MANDELATE [Concomitant]
     Active Substance: METHENAMINE MANDELATE
     Route: 065

REACTIONS (1)
  - Hypoaesthesia [Unknown]
